FAERS Safety Report 10260393 (Version 2)
Quarter: 2014Q2

REPORT INFORMATION
  Report Type: Spontaneous
  Country: AT (occurrence: AT)
  Receive Date: 20140625
  Receipt Date: 20140625
  Transmission Date: 20141212
  Serious: Yes (Hospitalization)
  Sender: FDA-Public Use
  Company Number: AT-AMGEN-AUTSP2014044990

PATIENT
  Age: 68 Year
  Sex: Female
  Weight: 75 kg

DRUGS (10)
  1. NEUPOGEN [Suspect]
     Indication: NEUTROPENIA
     Dosage: 2 X EACH 30 MIOIE, EVERY 2D
     Route: 058
     Dates: start: 20140527, end: 20140529
  2. NEULASTA [Suspect]
     Indication: NEUTROPENIA
     Dosage: UNK
     Route: 058
     Dates: start: 20140606
  3. CARBOPLATIN [Concomitant]
     Indication: OVARIAN NEOPLASM
     Dosage: AUC5, 21
     Route: 042
     Dates: start: 20140424
  4. TAXOTERE [Concomitant]
     Dosage: UNK
  5. TAXOL [Concomitant]
     Indication: OVARIAN CANCER
     Dosage: 175 MG/M2, 21
     Route: 042
     Dates: start: 20140424
  6. FRAGMIN [Concomitant]
     Dosage: 5000 UNK, 1 X DAILY
     Route: 058
  7. FORTECORTIN                        /00016001/ [Concomitant]
     Dosage: 8 MG, UNK
  8. NAVOBAN [Concomitant]
     Dosage: UNK
  9. ZYRTEC [Concomitant]
     Dosage: UNK, FOR 5 DAYS AFTER CHEMO
  10. EMEND                              /01627301/ [Concomitant]
     Dosage: UNK

REACTIONS (4)
  - Spinal pain [Recovered/Resolved]
  - Pelvic pain [Recovered/Resolved]
  - Headache [Recovered/Resolved]
  - Bone pain [Unknown]
